FAERS Safety Report 11695412 (Version 1)
Quarter: 2015Q4

REPORT INFORMATION
  Report Type: Spontaneous
  Country: US (occurrence: US)
  Receive Date: 20151104
  Receipt Date: 20151104
  Transmission Date: 20160304
  Serious: No
  Sender: FDA-Public Use
  Company Number: US-AMGEN-USASP2015114730

PATIENT
  Age: 55 Year
  Sex: Female
  Weight: 154.2 kg

DRUGS (23)
  1. SULFASALAZINE. [Concomitant]
     Active Substance: SULFASALAZINE
     Dosage: UNK
  2. ADVAIR HFA [Concomitant]
     Active Substance: FLUTICASONE PROPIONATE\SALMETEROL XINAFOATE
     Dosage: UNK
  3. LISINOPRIL. [Concomitant]
     Active Substance: LISINOPRIL
     Dosage: UNK
  4. DIOVAN [Concomitant]
     Active Substance: VALSARTAN
     Dosage: UNK
  5. DOXYCYCLINE. [Concomitant]
     Active Substance: DOXYCYCLINE
     Dosage: UNK
  6. LASIX [Concomitant]
     Active Substance: FUROSEMIDE
     Dosage: UNK
  7. LEXAPRO [Concomitant]
     Active Substance: ESCITALOPRAM OXALATE
     Dosage: UNK
  8. ENBREL [Suspect]
     Active Substance: ETANERCEPT
     Indication: PSORIATIC ARTHROPATHY
     Dosage: 50 MG, WEEKLY
     Route: 058
     Dates: start: 201302
  9. RED YEAST RICE [Concomitant]
     Active Substance: DIETARY SUPPLEMENT
     Dosage: UNK
  10. VITAMIN D                          /00107901/ [Concomitant]
     Active Substance: ERGOCALCIFEROL
     Dosage: UNK
  11. LEVOTHYROXINE. [Concomitant]
     Active Substance: LEVOTHYROXINE
     Dosage: UNK
  12. OMEPRAZOLE. [Concomitant]
     Active Substance: OMEPRAZOLE
     Dosage: UNK
  13. ASA [Concomitant]
     Active Substance: ASPIRIN
     Dosage: 81 MG, UNK
  14. CETIRIZINE [Concomitant]
     Active Substance: CETIRIZINE HYDROCHLORIDE
     Dosage: UNK
  15. NABUMETONE. [Concomitant]
     Active Substance: NABUMETONE
     Dosage: UNK
  16. ECOTRIN [Concomitant]
     Active Substance: ASPIRIN
     Dosage: UNK
  17. RANITIDINE [Concomitant]
     Active Substance: RANITIDINE\RANITIDINE HYDROCHLORIDE
     Dosage: UNK
  18. ASTELIN                            /00884002/ [Concomitant]
     Dosage: UNK
  19. DULERA [Concomitant]
     Active Substance: FORMOTEROL FUMARATE DIHYDRATE\MOMETASONE FUROATE
     Dosage: UNK
  20. FIBER [Concomitant]
     Active Substance: PSYLLIUM HUSK
     Dosage: UNK
  21. FISH OIL [Concomitant]
     Active Substance: FISH OIL
     Dosage: UNK
  22. SINGULAIR [Concomitant]
     Active Substance: MONTELUKAST SODIUM
     Dosage: UNK
  23. XOPENEX [Concomitant]
     Active Substance: LEVALBUTEROL HYDROCHLORIDE
     Dosage: UNK

REACTIONS (3)
  - Injection site pain [Unknown]
  - Device issue [Unknown]
  - Sinusitis [Recovered/Resolved]

NARRATIVE: CASE EVENT DATE: 201508
